FAERS Safety Report 9714026 (Version 1)
Quarter: 2013Q4

REPORT INFORMATION
  Report Type: Spontaneous
  Country: US (occurrence: US)
  Receive Date: 20131126
  Receipt Date: 20131126
  Transmission Date: 20140711
  Serious: No
  Sender: FDA-Public Use
  Company Number: US-GILEAD-2008-0018633

PATIENT
  Age: 74 Year
  Sex: Female
  Weight: 83.01 kg

DRUGS (3)
  1. LETAIRIS [Suspect]
     Indication: PULMONARY ARTERIAL HYPERTENSION
     Route: 048
     Dates: start: 20080927, end: 20081006
  2. REVATIO [Concomitant]
  3. AMBIEN [Concomitant]

REACTIONS (2)
  - Weight increased [None]
  - Local swelling [None]
